FAERS Safety Report 19111000 (Version 1)
Quarter: 2021Q2

REPORT INFORMATION
  Report Type: Spontaneous
  Country: TR (occurrence: TR)
  Receive Date: 20210409
  Receipt Date: 20210409
  Transmission Date: 20210717
  Serious: Yes (Hospitalization)
  Sender: FDA-Public Use
  Company Number: TR-MICRO LABS LIMITED-ML2021-01046

PATIENT
  Age: 57 Year
  Sex: Female

DRUGS (12)
  1. METFORMIN [Suspect]
     Active Substance: METFORMIN HYDROCHLORIDE
     Dosage: 2?1,000 MG
  2. LACTULOSE. [Suspect]
     Active Substance: LACTULOSE
     Dosage: INTERMITTENT
  3. VERAPAMIL HYDROCHLORIDE. [Suspect]
     Active Substance: VERAPAMIL HYDROCHLORIDE
  4. SOTALOL. [Suspect]
     Active Substance: SOTALOL
  5. AMLODIPINE [Suspect]
     Active Substance: AMLODIPINE BESYLATE
  6. RIVAROXABAN [Suspect]
     Active Substance: RIVAROXABAN
  7. TRAZODONE [Suspect]
     Active Substance: TRAZODONE HYDROCHLORIDE
  8. LEVOTHYROXINE. [Suspect]
     Active Substance: LEVOTHYROXINE
     Dates: start: 201911
  9. CANDESARTAN/HYDROCHLOROTHIAZIDE [Suspect]
     Active Substance: CANDESARTAN CILEXETIL\HYDROCHLOROTHIAZIDE
     Dosage: 16/12.5 MG
  10. DESLORATADINE/MONTELUKAST [Suspect]
     Active Substance: DESLORATADINE\MONTELUKAST SODIUM
     Dosage: 5/10 MG
  11. CITALOPRAM [Suspect]
     Active Substance: CITALOPRAM HYDROBROMIDE
  12. LANSOPRAZOLE. [Suspect]
     Active Substance: LANSOPRAZOLE

REACTIONS (2)
  - Drug interaction [Unknown]
  - Malabsorption [Recovered/Resolved]
